FAERS Safety Report 17669657 (Version 1)
Quarter: 2020Q2

REPORT INFORMATION
  Report Type: Spontaneous
  Country: DE (occurrence: DE)
  Receive Date: 20200415
  Receipt Date: 20200415
  Transmission Date: 20200713
  Serious: Yes (Hospitalization, Other)
  Sender: FDA-Public Use
  Company Number: DE-TEVA-2020-DE-1222956

PATIENT
  Age: 64 Year
  Sex: Male

DRUGS (3)
  1. APIXABAN [Suspect]
     Active Substance: APIXABAN
     Dosage: 5 MG, 1-0-1-0
     Route: 065
  2. CANDESARTAN. [Concomitant]
     Active Substance: CANDESARTAN
     Dosage: 8 MG, 1-0-0-0
  3. CLOPIDOGREL [Suspect]
     Active Substance: CLOPIDOGREL BISULFATE
     Dosage: 75 MG, 1-0-0-0
     Route: 065

REACTIONS (6)
  - General physical health deterioration [Unknown]
  - Pallor [Unknown]
  - Fatigue [Unknown]
  - Dizziness [Unknown]
  - Anaemia [Unknown]
  - Haematochezia [Unknown]
